FAERS Safety Report 6735985-1 (Version None)
Quarter: 2010Q2

REPORT INFORMATION
  Report Type: 
  Country: None (occurrence: None)
  Receive Date: 20100521
  Receipt Date: 20100511
  Transmission Date: 20101027
  Serious: Yes (Death, Hospitalization, Other)
  Sender: FDA-Public Use
  Company Number: IT-AMGEN-KDL407970

PATIENT
  Age: 79 Year
  Sex: Male

DRUGS (5)
  1. NEULASTA [Suspect]
     Indication: CHEMOTHERAPY
  2. PREDNISONE [Concomitant]
  3. CYCLOPHOSPHAMIDE [Concomitant]
  4. EPIRUBICIN [Concomitant]
  5. VINCRISTINE [Concomitant]

REACTIONS (8)
  - ACCIDENTAL OVERDOSE [None]
  - BONE PAIN [None]
  - DYSPNOEA [None]
  - EMPHYSEMA [None]
  - INCORRECT DRUG ADMINISTRATION DURATION [None]
  - MENINGITIS STAPHYLOCOCCAL [None]
  - OEDEMA PERIPHERAL [None]
  - PLEURAL EFFUSION [None]
